FAERS Safety Report 21877188 (Version 2)
Quarter: 2023Q1

REPORT INFORMATION
  Report Type: Spontaneous
  Country: KR (occurrence: KR)
  Receive Date: 20230118
  Receipt Date: 20230124
  Transmission Date: 20230417
  Serious: Yes (Death, Hospitalization, Other)
  Sender: FDA-Public Use
  Company Number: KR-ASTELLAS-2023US001441

PATIENT
  Age: 70 Year
  Sex: Male

DRUGS (10)
  1. XTANDI [Interacting]
     Active Substance: ENZALUTAMIDE
     Indication: Prostate cancer
     Dosage: 160 MG, ONCE DAILY (4 DF)
     Route: 065
     Dates: start: 201310, end: 201311
  2. XTANDI [Interacting]
     Active Substance: ENZALUTAMIDE
     Dosage: UNK UNK, UNKNOWN FREQ.
     Route: 065
     Dates: start: 201404
  3. XTANDI [Interacting]
     Active Substance: ENZALUTAMIDE
     Dosage: UNK UNK, UNKNOWN FREQ.
     Route: 065
     Dates: start: 201406, end: 201407
  4. ZYTIGA [Interacting]
     Active Substance: ABIRATERONE ACETATE
     Indication: Prostate cancer
     Dosage: UNK UNK, UNKNOWN FREQ.
     Route: 065
     Dates: start: 2012
  5. ZYTIGA [Interacting]
     Active Substance: ABIRATERONE ACETATE
     Dosage: UNK UNK, UNKNOWN FREQ.
     Route: 065
     Dates: start: 201306, end: 201309
  6. ZYTIGA [Interacting]
     Active Substance: ABIRATERONE ACETATE
     Dosage: UNK UNK, UNKNOWN FREQ.
     Route: 065
     Dates: start: 201406
  7. DOCETAXEL [Concomitant]
     Active Substance: DOCETAXEL
     Indication: Prostate cancer
     Dosage: UNK UNK, UNKNOWN FREQ.
     Route: 065
     Dates: start: 201301, end: 201306
  8. DOCETAXEL [Concomitant]
     Active Substance: DOCETAXEL
     Dosage: UNK UNK, UNKNOWN FREQ.
     Route: 065
     Dates: start: 201404
  9. PREDNISOLONE [Concomitant]
     Active Substance: PREDNISOLONE
     Indication: Product used for unknown indication
     Dosage: UNK, UNKNOWN FREQ.
     Route: 065
     Dates: start: 201311, end: 201311
  10. PREDNISOLONE [Concomitant]
     Active Substance: PREDNISOLONE
     Dosage: UNK, UNKNOWN FREQ.
     Route: 065
     Dates: start: 201406

REACTIONS (12)
  - Death [Fatal]
  - Infection [Unknown]
  - Pneumonia [Unknown]
  - Pneumonia [Unknown]
  - Feeding disorder [Unknown]
  - Pleural effusion [Unknown]
  - Headache [Unknown]
  - Dysphagia [Unknown]
  - Prostatic specific antigen increased [Unknown]
  - Drug interaction [Unknown]
  - Drug ineffective [Unknown]
  - Off label use [Unknown]

NARRATIVE: CASE EVENT DATE: 20130101
